FAERS Safety Report 15285023 (Version 2)
Quarter: 2019Q2

REPORT INFORMATION
  Report Type: Spontaneous
  Country: CA (occurrence: CA)
  Receive Date: 20180816
  Receipt Date: 20190422
  Transmission Date: 20190711
  Serious: Yes (Hospitalization)
  Sender: FDA-Public Use
  Company Number: CA-PFIZER INC-2018326806

PATIENT
  Age: 55 Year
  Sex: Female

DRUGS (14)
  1. CORTEF [Interacting]
     Active Substance: HYDROCORTISONE
     Dosage: 20 MG, 3X/DAY
  2. ABILIFY [Interacting]
     Active Substance: ARIPIPRAZOLE
     Dosage: 7 MG, 1X/DAY
     Route: 048
  3. ABILIFY [Interacting]
     Active Substance: ARIPIPRAZOLE
     Dosage: 1 DF, 1X/DAY
     Route: 048
  4. CORTEF [Interacting]
     Active Substance: HYDROCORTISONE
     Dosage: 30 MG, UNK
     Route: 065
  5. CORTEF [Interacting]
     Active Substance: HYDROCORTISONE
     Dosage: 20 MG, 1X/DAY
     Route: 065
  6. SYNTHROID [Concomitant]
     Active Substance: LEVOTHYROXINE SODIUM
     Indication: PRODUCT USED FOR UNKNOWN INDICATION
     Dosage: UNK
     Route: 065
  7. ABILIFY [Interacting]
     Active Substance: ARIPIPRAZOLE
     Indication: DELUSIONAL DISORDER, UNSPECIFIED TYPE
     Dosage: 10 MG, 1X/DAY
     Route: 048
  8. ABILIFY [Interacting]
     Active Substance: ARIPIPRAZOLE
     Dosage: 7 MG, 1X/DAY
     Route: 048
  9. ABILIFY [Interacting]
     Active Substance: ARIPIPRAZOLE
     Dosage: 5 MG, 1X/DAY
     Route: 048
  10. CORTEF [Interacting]
     Active Substance: HYDROCORTISONE
     Dosage: 10 MG, 2X/DAY
  11. CORTEF [Interacting]
     Active Substance: HYDROCORTISONE
     Dosage: 60 MG, 1X/DAY
     Route: 065
  12. CORTEF [Suspect]
     Active Substance: HYDROCORTISONE
     Indication: PRODUCT USED FOR UNKNOWN INDICATION
     Dosage: 30 MG, UNK (ONCE)
  13. FLORINEF ACETATE [Concomitant]
     Active Substance: FLUDROCORTISONE ACETATE
     Dosage: UNK
  14. FLUDROCORTISONE ACETATE. [Concomitant]
     Active Substance: FLUDROCORTISONE ACETATE
     Indication: PRODUCT USED FOR UNKNOWN INDICATION
     Dosage: UNK
     Route: 065

REACTIONS (4)
  - Cortisol decreased [Recovering/Resolving]
  - Drug interaction [Recovering/Resolving]
  - Therapy change [Recovering/Resolving]
  - Product use in unapproved indication [Recovering/Resolving]
